FAERS Safety Report 9825462 (Version 1)
Quarter: 2013Q4

REPORT INFORMATION
  Report Type: Spontaneous
  Country: US (occurrence: None)
  Receive Date: 20131101
  Receipt Date: 20131101
  Transmission Date: 20140711
  Serious: Yes (Other)
  Sender: FDA-Public Use
  Company Number: ID NR. 2429_SP

PATIENT
  Age: 49 Year
  Sex: Male
  Weight: 117.9 kg

DRUGS (3)
  1. LEVOFLOXACIN/DEXTROSE [Suspect]
     Indication: CALCULUS URETERIC
     Route: 042
     Dates: start: 20130607, end: 20130608
  2. DEMEROL [Concomitant]
  3. ZOFRAN [Concomitant]

REACTIONS (1)
  - Rash [None]
